FAERS Safety Report 10149603 (Version 1)
Quarter: 2014Q2

REPORT INFORMATION
  Report Type: Spontaneous
  Country: GB (occurrence: None)
  Receive Date: 20140430
  Receipt Date: 20140430
  Transmission Date: 20141212
  Serious: No
  Sender: FDA-Public Use
  Company Number: B0984792A

PATIENT
  Age: 71 Year
  Sex: Female
  Weight: 66.54 kg

DRUGS (6)
  1. PAROXETINE HYDROCHLORIDE [Suspect]
     Indication: SEASONAL AFFECTIVE DISORDER
     Dates: start: 201312
  2. ATENOLOL [Concomitant]
  3. BENDROFLUAZIDE [Concomitant]
  4. SIMVASTATIN [Concomitant]
  5. DOXAZOSIN [Concomitant]
  6. LANSOPRAZOLE [Concomitant]

REACTIONS (7)
  - Nausea [None]
  - Dizziness [None]
  - Syncope [None]
  - Drug ineffective [None]
  - Depression [None]
  - Anxiety [None]
  - Social avoidant behaviour [None]
